FAERS Safety Report 9579984 (Version 1)
Quarter: 2013Q3

REPORT INFORMATION
  Report Type: Spontaneous
  Country: US (occurrence: None)
  Receive Date: 20130930
  Receipt Date: 20130930
  Transmission Date: 20140515
  Serious: No
  Sender: FDA-Public Use
  Company Number: None

PATIENT
  Age: 60 Year
  Sex: Male
  Weight: 102.06 kg

DRUGS (2)
  1. DR. SCHOLL^S [Suspect]
     Indication: SKIN PAPILLOMA
     Dosage: APPLIED TO A SURFACE USUALLY THE SKIN
     Route: 061
  2. DR. SCHOLL^S [Suspect]

REACTIONS (3)
  - Thermal burn [None]
  - Scar [None]
  - Blister [None]
